FAERS Safety Report 9501999 (Version 2)
Quarter: 2013Q3

REPORT INFORMATION
  Report Type: Spontaneous
  Country: US (occurrence: US)
  Receive Date: 20130905
  Receipt Date: 20130923
  Transmission Date: 20140515
  Serious: Yes (Other)
  Sender: FDA-Public Use
  Company Number: US-BAYER-2013-107582

PATIENT
  Age: 31 Year
  Sex: Female

DRUGS (2)
  1. MIRENA [Suspect]
     Indication: CONTRACEPTION
     Dosage: 20 MCG/24HR, CONT
     Route: 015
     Dates: start: 20120111, end: 20130804
  2. MIRENA [Suspect]
     Indication: MENORRHAGIA

REACTIONS (4)
  - Genital haemorrhage [None]
  - Device dislocation [None]
  - Pelvic pain [None]
  - Off label use [None]
